FAERS Safety Report 5332041-4 (Version None)
Quarter: 2007Q2

REPORT INFORMATION
  Report Type: 
  Country: None (occurrence: None)
  Receive Date: 20070523
  Receipt Date: 20070514
  Transmission Date: 20071010
  Serious: Yes (Hospitalization)
  Sender: FDA-Public Use
  Company Number: PHBS2007TW08161

PATIENT
  Age: 47 Year
  Sex: Male

DRUGS (1)
  1. CO-DIOVAN [Suspect]
     Indication: HYPERTENSION
     Route: 048
     Dates: start: 20060925

REACTIONS (3)
  - HAEMATURIA [None]
  - URETHRAL DILATION PROCEDURE [None]
  - URETHRAL STENOSIS [None]
